FAERS Safety Report 5207805-8 (Version None)
Quarter: 2006Q4

REPORT INFORMATION
  Report Type: 
  Country: None (occurrence: None)
  Receive Date: 20061030
  Receipt Date: 20060712
  Transmission Date: 20070319
  Serious: No
  Sender: FDA-Public Use
  Company Number: 2005CT000311

PATIENT
  Age: 31 Year
  Sex: Female
  Weight: 49.8957 kg

DRUGS (12)
  1. VENTAVIS [Suspect]
     Indication: PULMONARY HYPERTENSION
     Dosage: 2.5 UG; ONCE; INH
     Route: 055
     Dates: start: 20050902, end: 20050902
  2. VENTAVIS [Suspect]
     Indication: PULMONARY HYPERTENSION
     Dosage: 5 UG; 6 TO 9 X/DAY; INH
     Route: 055
     Dates: start: 20050902
  3. VENTAVIS [Suspect]
     Indication: PULMONARY HYPERTENSION
     Dosage: 5 UG; 6 X D; INH
     Route: 055
  4. VENTAVIS [Suspect]
     Indication: PULMONARY HYPERTENSION
     Dosage: 2.5 UG; 6 X D; INH
     Route: 055
  5. POTASSIUM ACETATE [Concomitant]
  6. FUROSEMIDE [Concomitant]
  7. LANOXIN [Concomitant]
  8. ZOFRAN [Concomitant]
  9. MECLIZINE [Concomitant]
  10. WARFARIN SODIUM [Concomitant]
  11. SITAXSENTAN [Concomitant]
  12. .. [Concomitant]

REACTIONS (4)
  - COUGH [None]
  - DIZZINESS [None]
  - NASAL DRYNESS [None]
  - VOMITING [None]
